FAERS Safety Report 9805996 (Version 1)
Quarter: 2014Q1

REPORT INFORMATION
  Report Type: Spontaneous
  Country: DE (occurrence: None)
  Receive Date: 20140107
  Receipt Date: 20140107
  Transmission Date: 20141002
  Serious: Yes (Other)
  Sender: FDA-Public Use
  Company Number: AUR-APL-2014-00024

PATIENT
  Age: 37 Year
  Sex: Female
  Weight: 65 kg

DRUGS (4)
  1. PAROXETINE [Suspect]
     Indication: DEPRESSION
     Dosage: 40 MG, 1 IN 1 D
     Route: 048
     Dates: start: 20090414, end: 20090630
  2. ADALAT (NIFEDIPINE) [Concomitant]
  3. FOLIO (FOLIO) [Concomitant]
  4. KADEFUNGIN (CLOTRIMAZOLE) [Concomitant]

REACTIONS (7)
  - Maternal exposure during pregnancy [None]
  - Pregnancy [None]
  - Vulvovaginal mycotic infection [None]
  - Polyhydramnios [None]
  - Premature labour [None]
  - Premature rupture of membranes [None]
  - Caesarean section [None]
